FAERS Safety Report 13630420 (Version 1)
Quarter: 2017Q2

REPORT INFORMATION
  Report Type: Spontaneous
  Country: US (occurrence: US)
  Receive Date: 20170531
  Receipt Date: 20170531
  Transmission Date: 20170830
  Serious: No
  Sender: FDA-Public Use
  Company Number: US-ASTELLAS-1300746

PATIENT
  Age: 57 Year
  Sex: Female

DRUGS (1)
  1. TARCEVA [Suspect]
     Active Substance: ERLOTINIB HYDROCHLORIDE
     Indication: PRODUCT USED FOR UNKNOWN INDICATION
     Dosage: STARTED 6 AND HALF MONTHS AGO
     Route: 065

REACTIONS (5)
  - Skin disorder [Unknown]
  - Alopecia [Unknown]
  - Dry mouth [Unknown]
  - Onychoclasis [Unknown]
  - Laceration [Unknown]
